FAERS Safety Report 14332785 (Version 1)
Quarter: 2017Q4

REPORT INFORMATION
  Report Type: Spontaneous
  Country: JP (occurrence: None)
  Receive Date: 20171228
  Receipt Date: 20171228
  Transmission Date: 20180321
  Serious: Yes (Other)
  Sender: FDA-Public Use
  Company Number: 2017-222752

PATIENT
  Age: 20 Year
  Sex: Male

DRUGS (3)
  1. CYTARABINE. [Concomitant]
     Active Substance: CYTARABINE
  2. CIPROXAN 100 MG (CIPROFLOXACIN MONOHYDROCHLORIDE) FILM-COATED TABLET, 100 MG [Suspect]
     Active Substance: CIPROFLOXACIN HYDROCHLORIDE
     Route: 048
  3. CYCLOPHOSPHAMIDE. [Concomitant]
     Active Substance: CYCLOPHOSPHAMIDE

REACTIONS (2)
  - Bacteraemia [None]
  - Capnocytophaga test positive [None]
